FAERS Safety Report 8385718-0 (Version None)
Quarter: 2012Q2

REPORT INFORMATION
  Report Type: 
  Country: None (occurrence: None)
  Receive Date: 20120523
  Receipt Date: 20120508
  Transmission Date: 20120825
  Serious: Yes (Hospitalization, Other)
  Sender: FDA-Public Use
  Company Number: HA12-154-AE

PATIENT
  Age: 74 Year
  Sex: Female
  Weight: 74.4 kg

DRUGS (14)
  1. LOVASTATIN [Concomitant]
  2. VENLAFAXINE HYDROCHLORIDE [Concomitant]
  3. MULTI-VITAMINS [Concomitant]
  4. FEXOFENADINE HYDROCHLORIDE [Concomitant]
  5. CALCIUM CARBONATE [Concomitant]
  6. NAPROXEN [Suspect]
     Indication: OSTEOARTHRITIS
     Dosage: THREE TIMES A DAY, ORAL
     Route: 048
     Dates: start: 20081217, end: 20090903
  7. NAPROXEN [Suspect]
     Indication: RHEUMATOID ARTHRITIS
     Dosage: THREE TIMES A DAY, ORAL
     Route: 048
     Dates: start: 20081217, end: 20090903
  8. CELECOXIB; IBUPROFEN; PLACEBO [Suspect]
     Indication: RHEUMATOID ARTHRITIS
     Dosage: THREE TIMES A DAY, ORAL
     Route: 048
     Dates: start: 20081217, end: 20090903
  9. CELECOXIB; IBUPROFEN; PLACEBO [Suspect]
     Indication: OSTEOARTHRITIS
     Dosage: THREE TIMES A DAY, ORAL
     Route: 048
     Dates: start: 20081217, end: 20090903
  10. ESOMEPRAZOLE CAPSULE [Concomitant]
  11. ZOLPIDEM TARTRATE [Concomitant]
  12. METHOTREXATE [Concomitant]
  13. FOLIC ACID [Concomitant]
  14. DILTIAZEM HCL [Concomitant]

REACTIONS (24)
  - DEHYDRATION [None]
  - RED BLOOD CELL COUNT DECREASED [None]
  - RENAL TUBULAR NECROSIS [None]
  - NEUROPATHY PERIPHERAL [None]
  - LEFT VENTRICULAR HYPERTROPHY [None]
  - TRICUSPID VALVE INCOMPETENCE [None]
  - NEUTROPHIL PERCENTAGE INCREASED [None]
  - PULMONARY HYPERTENSION [None]
  - SYNCOPE [None]
  - NAUSEA [None]
  - NORMOCHROMIC NORMOCYTIC ANAEMIA [None]
  - DILATATION ATRIAL [None]
  - MYOCARDIAL ISCHAEMIA [None]
  - RENAL FAILURE [None]
  - VOMITING [None]
  - LOSS OF CONSCIOUSNESS [None]
  - HYPOXIA [None]
  - TREMOR [None]
  - RIGHT VENTRICULAR HYPERTROPHY [None]
  - RENAL FAILURE ACUTE [None]
  - DRUG-INDUCED LIVER INJURY [None]
  - THROMBOCYTOPENIA [None]
  - HAEMODIALYSIS [None]
  - DIASTOLIC DYSFUNCTION [None]
